FAERS Safety Report 9373071 (Version 1)
Quarter: 2013Q2

REPORT INFORMATION
  Report Type: Spontaneous
  Country: GB (occurrence: GB)
  Receive Date: 20130627
  Receipt Date: 20130627
  Transmission Date: 20140414
  Serious: Yes (Other)
  Sender: FDA-Public Use
  Company Number: GB-ABBOTT-13P-167-1073686-00

PATIENT
  Age: 34 Year
  Sex: Male

DRUGS (6)
  1. NORVIR [Suspect]
     Indication: HIV INFECTION
     Route: 065
     Dates: start: 20100114
  2. PREZISTA [Suspect]
     Indication: HIV INFECTION
     Route: 048
     Dates: start: 20100114
  3. ZOPICLONE [Concomitant]
     Indication: SEDATIVE THERAPY
     Dosage: 3.75 - 7.5 MG NOCTE
     Route: 065
  4. ADCAL [Concomitant]
     Indication: PRODUCT USED FOR UNKNOWN INDICATION
     Route: 065
  5. CETRIZIN [Concomitant]
     Indication: PRODUCT USED FOR UNKNOWN INDICATION
     Dosage: FORM: UNSPECIFIED
     Route: 065
  6. LANSOPRAZOLE [Concomitant]
     Indication: GASTROOESOPHAGEAL REFLUX DISEASE
     Dosage: 30 MG ONCE DAILY AS NECESSARY

REACTIONS (2)
  - Dyslipidaemia [Unknown]
  - Lipodystrophy acquired [Unknown]
